FAERS Safety Report 23869315 (Version 2)
Quarter: 2024Q2

REPORT INFORMATION
  Report Type: Spontaneous
  Country: RO (occurrence: RO)
  Receive Date: 20240517
  Receipt Date: 20240619
  Transmission Date: 20240716
  Serious: Yes (Other)
  Sender: FDA-Public Use
  Company Number: RO-TEVA-VS-3196848

PATIENT
  Age: 53 Year
  Sex: Female

DRUGS (1)
  1. IRINOTECAN [Suspect]
     Active Substance: IRINOTECAN
     Indication: Product used for unknown indication
     Dosage: RECEIVING ONE CYCLE EVERY TWO WEEKS. WITHIN 5-10 MINUTES OF THE 13TH CYCLE
     Route: 050
     Dates: start: 202305

REACTIONS (8)
  - Tachycardia [Recovered/Resolved]
  - Anaphylactic reaction [Recovered/Resolved]
  - Hypotension [Recovered/Resolved]
  - Abdominal pain [Recovered/Resolved]
  - Vision blurred [Recovered/Resolved]
  - Angioedema [Recovered/Resolved]
  - Dysphagia [Recovered/Resolved]
  - Rhinorrhoea [Recovered/Resolved]
